FAERS Safety Report 25736942 (Version 1)
Quarter: 2025Q3

REPORT INFORMATION
  Report Type: Spontaneous
  Country: US (occurrence: US)
  Receive Date: 20250828
  Receipt Date: 20250828
  Transmission Date: 20251020
  Serious: Yes (Other)
  Sender: PFIZER
  Company Number: US-PFIZER INC-202500169615

PATIENT
  Age: 51 Year
  Sex: Female

DRUGS (1)
  1. EXEMESTANE [Suspect]
     Active Substance: EXEMESTANE

REACTIONS (9)
  - Neuropathy peripheral [Unknown]
  - Arthralgia [Unknown]
  - Nausea [Unknown]
  - Brain fog [Unknown]
  - Myalgia [Unknown]
  - Insomnia [Unknown]
  - Mood swings [Unknown]
  - Hot flush [Unknown]
  - Dizziness [Unknown]
